FAERS Safety Report 15033988 (Version 1)
Quarter: 2018Q2

REPORT INFORMATION
  Report Type: Report from Study
  Country: None (occurrence: US)
  Receive Date: 20180620
  Receipt Date: 20180620
  Transmission Date: 20180711
  Serious: Yes (Other)
  Sender: FDA-Public Use
  Company Number: US-ABBVIE-18K-163-2258429-00

PATIENT
  Age: 56 Year
  Sex: Male

DRUGS (1)
  1. HUMIRA [Suspect]
     Active Substance: ADALIMUMAB
     Indication: PSORIATIC ARTHROPATHY
     Route: 058
     Dates: start: 20161222

REACTIONS (8)
  - Abdominal mass [Unknown]
  - Abdominal discomfort [Unknown]
  - Decreased appetite [Unknown]
  - Muscle tightness [Unknown]
  - Nausea [Unknown]
  - Umbilical hernia [Unknown]
  - Abdominal pain [Unknown]
  - Psoriasis [Not Recovered/Not Resolved]

NARRATIVE: CASE EVENT DATE: 20180117
